FAERS Safety Report 7540886-5 (Version None)
Quarter: 2011Q2

REPORT INFORMATION
  Report Type: 
  Country: None (occurrence: None)
  Receive Date: 20110610
  Receipt Date: 20110609
  Transmission Date: 20111010
  Serious: Yes (Other)
  Sender: FDA-Public Use
  Company Number: US-UCBSA-035052

PATIENT
  Age: 48 Year
  Sex: Male

DRUGS (2)
  1. VIMPAT [Suspect]
     Route: 042
  2. KEPPRA [Suspect]
     Route: 042

REACTIONS (1)
  - OESOPHAGEAL CARCINOMA [None]
